FAERS Safety Report 16526315 (Version 2)
Quarter: 2019Q4

REPORT INFORMATION
  Report Type: Spontaneous
  Country: US (occurrence: US)
  Receive Date: 20190703
  Receipt Date: 20191003
  Transmission Date: 20200122
  Serious: No
  Sender: FDA-Public Use
  Company Number: US-AVEDRO-AVE-2019-0133-AE

PATIENT
  Age: 33 Year
  Sex: Male

DRUGS (10)
  1. TETRACAINE. [Suspect]
     Active Substance: TETRACAINE
     Indication: PRODUCT USED FOR UNKNOWN INDICATION
     Route: 047
     Dates: start: 20181113, end: 20181113
  2. EYE RINSE [Suspect]
     Active Substance: UNSPECIFIED INGREDIENT
     Indication: EYE DROP INSTILLATION
     Route: 047
     Dates: start: 20181113, end: 20181113
  3. PREDNISOLONE. [Suspect]
     Active Substance: PREDNISOLONE
     Indication: PRODUCT USED FOR UNKNOWN INDICATION
     Route: 047
     Dates: start: 20181113, end: 20181113
  4. ACUVUE OASYS BANDAGE CONTACT LENS [Suspect]
     Active Substance: DEVICE
     Indication: PRODUCT USED FOR UNKNOWN INDICATION
     Route: 047
     Dates: start: 20181113
  5. NUMBING MIX OF 50% PROPARACAINE AND 50% ARTIFICIAL TEARS [Suspect]
     Active Substance: PROPARACAINE
     Indication: PAIN
     Route: 047
  6. PHOTREXA VISCOUS [Suspect]
     Active Substance: RIBOFLAVIN 5^-PHOSPHATE SODIUM
     Indication: KERATOCONUS
     Route: 047
     Dates: start: 20181113, end: 20181113
  7. KXL SYSTEM [Suspect]
     Active Substance: DEVICE
     Indication: KERATOCONUS
     Route: 047
     Dates: start: 20181113, end: 20181113
  8. BALANCED SALT SOLUTION [Suspect]
     Active Substance: CALCIUM CHLORIDE\MAGNESIUM CHLORIDE\POTASSIUM CHLORIDE\SODIUM ACETATE\SODIUM CHLORIDE\SODIUM CITRATE
     Indication: EYE DROP INSTILLATION
     Route: 047
     Dates: start: 20181113, end: 20181113
  9. MOXIFLOXACIN. [Suspect]
     Active Substance: MOXIFLOXACIN
     Indication: PRODUCT USED FOR UNKNOWN INDICATION
     Route: 047
     Dates: start: 20181113, end: 20181113
  10. PHOTREXA [Suspect]
     Active Substance: RIBOFLAVIN 5^-PHOSPHATE SODIUM
     Indication: KERATOCONUS
     Route: 047
     Dates: start: 20181113, end: 20181113

REACTIONS (1)
  - Corneal epithelium defect [Recovered/Resolved]

NARRATIVE: CASE EVENT DATE: 20181120
